FAERS Safety Report 9530918 (Version 2)
Quarter: 2013Q3

REPORT INFORMATION
  Report Type: Spontaneous
  Country: HU (occurrence: HU)
  Receive Date: 20130918
  Receipt Date: 20130925
  Transmission Date: 20140515
  Serious: Yes (Death, Hospitalization)
  Sender: FDA-Public Use
  Company Number: HU-JNJFOC-20130909581

PATIENT
  Age: 83 Year
  Sex: 0

DRUGS (1)
  1. XARELTO [Suspect]
     Indication: PRODUCT USED FOR UNKNOWN INDICATION
     Route: 048

REACTIONS (5)
  - Acute abdomen [Fatal]
  - Jejunal perforation [Not Recovered/Not Resolved]
  - Hypovolaemic shock [Fatal]
  - Cardiogenic shock [Fatal]
  - Septic shock [Fatal]
